FAERS Safety Report 23618681 (Version 1)
Quarter: 2024Q1

REPORT INFORMATION
  Report Type: Spontaneous
  Country: US (occurrence: None)
  Receive Date: 20240311
  Receipt Date: 20240311
  Transmission Date: 20240410
  Serious: Yes (Life-Threatening, Disabling, Other)
  Sender: FDA-Public Use
  Company Number: None

PATIENT
  Age: 46 Year
  Sex: Female
  Weight: 60.3 kg

DRUGS (4)
  1. AMITRIPTYLINE\DICLOFENAC\LIDOCAINE [Suspect]
     Active Substance: AMITRIPTYLINE\DICLOFENAC\LIDOCAINE
     Indication: Hypoaesthesia
  2. AMOXICILLIN [Suspect]
     Active Substance: AMOXICILLIN
     Indication: Tooth infection
  3. IBUPROFEN [Suspect]
     Active Substance: IBUPROFEN
  4. ACETAMINOPHEN\CODEINE PHOSPHATE [Suspect]
     Active Substance: ACETAMINOPHEN\CODEINE PHOSPHATE

REACTIONS (10)
  - Dyspnoea [None]
  - Feeling abnormal [None]
  - Abdominal pain upper [None]
  - Gastric haemorrhage [None]
  - Temporomandibular joint syndrome [None]
  - Nerve injury [None]
  - Nausea [None]
  - General physical health deterioration [None]
  - Documented hypersensitivity to administered product [None]
  - Anxiety [None]

NARRATIVE: CASE EVENT DATE: 20220907
